FAERS Safety Report 18255631 (Version 1)
Quarter: 2020Q3

REPORT INFORMATION
  Report Type: Spontaneous
  Country: US (occurrence: US)
  Receive Date: 20200910
  Receipt Date: 20200910
  Transmission Date: 20201103
  Serious: No
  Sender: FDA-Public Use
  Company Number: US-ASTRAZENECA-2020SF05019

PATIENT
  Sex: Female

DRUGS (1)
  1. BYDUREON [Suspect]
     Active Substance: EXENATIDE
     Dosage: UNKNOWN
     Route: 065

REACTIONS (5)
  - Injection site mass [Unknown]
  - Drug hypersensitivity [Unknown]
  - Injection site pruritus [Unknown]
  - Adverse drug reaction [Unknown]
  - Injection site erythema [Unknown]
